FAERS Safety Report 9187299 (Version 1)
Quarter: 2013Q1

REPORT INFORMATION
  Report Type: Report from Study
  Country: US (occurrence: US)
  Receive Date: 20130325
  Receipt Date: 20130325
  Transmission Date: 20140127
  Serious: Yes (Hospitalization)
  Sender: FDA-Public Use
  Company Number: US-ROCHE-1203928

PATIENT
  Age: 24 Year
  Sex: Male
  Weight: 88 kg

DRUGS (2)
  1. DASATINIB [Suspect]
     Indication: GLIOBLASTOMA MULTIFORME
     Dosage: DATE OF LAST DOSE PRIOR TO SAE:12/MAR/2013
     Route: 048
     Dates: start: 20121231, end: 20130313
  2. BEVACIZUMAB [Suspect]
     Indication: GLIOBLASTOMA MULTIFORME
     Dosage: DATE OF LAST DOSE PRIOR TO SAE:11/MAR/2013
     Route: 065
     Dates: start: 20121231, end: 20130313

REACTIONS (4)
  - Hemiparesis [Not Recovered/Not Resolved]
  - Fatigue [Not Recovered/Not Resolved]
  - Malignant neoplasm progression [None]
  - Glioblastoma multiforme [None]
